FAERS Safety Report 6138140-1 (Version None)
Quarter: 2009Q1

REPORT INFORMATION
  Report Type: 
  Country: None (occurrence: None)
  Receive Date: 20090331
  Receipt Date: 20090316
  Transmission Date: 20090719
  Serious: No
  Sender: FDA-Public Use
  Company Number: US-BAYER-200910815BCC

PATIENT
  Age: 47 Year
  Sex: Male
  Weight: 88 kg

DRUGS (2)
  1. ALEVE [Suspect]
     Indication: DRUG USE FOR UNKNOWN INDICATION
     Dosage: BOTTLE COUNT 50
     Route: 048
     Dates: start: 20090315
  2. MULTI-VITAMIN [Concomitant]

REACTIONS (2)
  - LIP SWELLING [None]
  - OROPHARYNGEAL DISCOMFORT [None]
